FAERS Safety Report 4891248-0 (Version None)
Quarter: 2006Q1

REPORT INFORMATION
  Report Type: 
  Country: None (occurrence: None)
  Receive Date: 20060125
  Receipt Date: 20060113
  Transmission Date: 20060701
  Serious: Yes (Disabling)
  Sender: FDA-Public Use
  Company Number: FR-ROCHE-432555

PATIENT
  Sex: Male
  Weight: 3.2 kg

DRUGS (1)
  1. ROACCUTANE [Suspect]
     Indication: DRUG USE FOR UNKNOWN INDICATION

REACTIONS (4)
  - DRUG EXPOSURE DURING PREGNANCY [None]
  - EDUCATIONAL PROBLEM [None]
  - NEUROPATHY [None]
  - SPEECH DISORDER [None]
